FAERS Safety Report 25756080 (Version 1)
Quarter: 2025Q3

REPORT INFORMATION
  Report Type: Report from Study
  Country: GB (occurrence: GB)
  Receive Date: 20250903
  Receipt Date: 20250903
  Transmission Date: 20251021
  Serious: Yes (Other)
  Sender: ALEXION PHARMACEUTICALS
  Company Number: GB-AstraZeneca-CH-00940708A

PATIENT
  Age: 79 Year
  Sex: Female

DRUGS (3)
  1. BENRALIZUMAB [Suspect]
     Active Substance: BENRALIZUMAB
     Indication: Asthma
  2. BENRALIZUMAB [Suspect]
     Active Substance: BENRALIZUMAB
  3. APIXABAN [Concomitant]
     Active Substance: APIXABAN
     Indication: Thrombosis
     Route: 065

REACTIONS (8)
  - Peripheral swelling [Unknown]
  - Sleep disorder [Unknown]
  - Feeling hot [Unknown]
  - Hyperhidrosis [Unknown]
  - Pruritus [Unknown]
  - Feeling abnormal [Unknown]
  - Thrombosis [Unknown]
  - Arthropathy [Unknown]
